FAERS Safety Report 6309584-X (Version None)
Quarter: 2009Q3

REPORT INFORMATION
  Report Type: 
  Country: None (occurrence: None)
  Receive Date: 20090814
  Receipt Date: 20090804
  Transmission Date: 20100115
  Serious: Yes (Hospitalization, Other)
  Sender: FDA-Public Use
  Company Number: PHHY2009FR29504

PATIENT
  Age: 76 Year
  Sex: Female
  Weight: 66 kg

DRUGS (13)
  1. TEGRETOL-XR [Suspect]
     Indication: EPILEPSY
     Dosage: 200 MG, TID
     Route: 048
     Dates: start: 19820101
  2. TEGRETOL-XR [Suspect]
     Dosage: 200 MG, BID
     Route: 048
  3. TEGRETOL-XR [Suspect]
     Dosage: 400 MG, UNK
     Route: 048
  4. GARDENAL [Concomitant]
     Dosage: 100 MG DAILY
     Route: 048
     Dates: start: 19500101
  5. ACEBUTOLOL [Concomitant]
     Dosage: 200 MG DAILY
     Route: 048
  6. NISIS [Concomitant]
     Dosage: 80 MG DAILY
     Route: 048
  7. VASTEN [Concomitant]
     Dosage: 20 MG DAILY
     Route: 048
  8. ZYLORIC [Concomitant]
     Dosage: 200 MG DAILY
     Route: 048
  9. SYMBICORT [Concomitant]
     Dosage: 200 MG, UNK
  10. SPIRIVA [Concomitant]
  11. ESOMEPRAZOLE [Concomitant]
     Dosage: 40 MG, UNK
  12. ACETYLSALICYLATE LYSINE [Concomitant]
     Dosage: 75 MG, UNK
  13. DAFALGAN [Concomitant]
     Dosage: 1 G, TID

REACTIONS (9)
  - DIARRHOEA [None]
  - DIZZINESS [None]
  - DRUG ADMINISTRATION ERROR [None]
  - HEADACHE [None]
  - HEPATIC CIRRHOSIS [None]
  - LOSS OF CONSCIOUSNESS [None]
  - MALAISE [None]
  - OVERDOSE [None]
  - SCAR [None]
